FAERS Safety Report 26186197 (Version 1)
Quarter: 2025Q4

REPORT INFORMATION
  Report Type: Spontaneous
  Country: US (occurrence: None)
  Receive Date: 20251219
  Receipt Date: 20251219
  Transmission Date: 20260118
  Serious: Yes (Death)
  Sender: FDA-CTU
  Company Number: None

PATIENT
  Age: 61 Year
  Sex: Female

DRUGS (2)
  1. DEVICE [Suspect]
     Active Substance: DEVICE
  2. NIVESTYM [Suspect]
     Active Substance: FILGRASTIM-AAFI
     Dosage: DAILY FOR 10 DAYS EVERY 14 DAYS;

REACTIONS (1)
  - Death [None]
